FAERS Safety Report 9254177 (Version 1)
Quarter: 2013Q1

REPORT INFORMATION
  Report Type: Spontaneous
  Country: US (occurrence: None)
  Receive Date: 20121203
  Receipt Date: 20121203
  Transmission Date: 20140127
  Serious: Yes (Hospitalization)
  Sender: FDA-Public Use
  Company Number: 1208USA011560

PATIENT
  Age: 33 Year
  Sex: Female
  Weight: 53.5 kg

DRUGS (1)
  1. NUVARING [Suspect]
     Indication: CONTRACEPTION
     Route: 067
     Dates: start: 200902, end: 201109

REACTIONS (2)
  - Gallbladder disorder [None]
  - Palpitations [None]
